FAERS Safety Report 6333190-4 (Version None)
Quarter: 2009Q3

REPORT INFORMATION
  Report Type: 
  Country: None (occurrence: None)
  Receive Date: 20090828
  Receipt Date: 20090814
  Transmission Date: 20100115
  Serious: Yes (Death)
  Sender: FDA-Public Use
  Company Number: GR-GENENTECH-282633

PATIENT
  Age: 52 Year
  Sex: Male

DRUGS (5)
  1. AVASTIN [Suspect]
     Indication: LUNG ADENOCARCINOMA
  2. ERLOTINIB [Suspect]
     Indication: LUNG ADENOCARCINOMA
  3. CARBOPLATIN [Concomitant]
     Indication: LUNG ADENOCARCINOMA
  4. ETOPOSIDE [Concomitant]
     Indication: LUNG ADENOCARCINOMA
  5. RADIOTHERAPY [Concomitant]
     Indication: LUNG ADENOCARCINOMA

REACTIONS (3)
  - ARTERIAL THROMBOSIS LIMB [None]
  - EXTREMITY NECROSIS [None]
  - TREATMENT FAILURE [None]
